FAERS Safety Report 11585484 (Version 1)
Quarter: 2015Q4

REPORT INFORMATION
  Report Type: Spontaneous
  Country: US (occurrence: US)
  Receive Date: 20151001
  Receipt Date: 20151001
  Transmission Date: 20160304
  Serious: Yes (Other)
  Sender: FDA-Public Use
  Company Number: US-ASTELLAS-2015US035110

PATIENT
  Age: 74 Year
  Sex: Male

DRUGS (1)
  1. XTANDI [Suspect]
     Active Substance: ENZALUTAMIDE
     Indication: PROSTATE CANCER
     Dosage: 160 MG (40 MG X 4 CAPSULES), ONCE DAILY
     Route: 048
     Dates: start: 201509

REACTIONS (14)
  - Arthralgia [Unknown]
  - Muscular weakness [Unknown]
  - Back pain [Unknown]
  - Productive cough [Unknown]
  - Tinnitus [Unknown]
  - Bone pain [Unknown]
  - Constipation [Unknown]
  - Dyspnoea [Unknown]
  - Chest pain [Unknown]
  - Neuropathy peripheral [Unknown]
  - Fatigue [Unknown]
  - Insomnia [Unknown]
  - Vision blurred [Unknown]
  - Myalgia [Unknown]

NARRATIVE: CASE EVENT DATE: 20150922
